FAERS Safety Report 19134380 (Version 1)
Quarter: 2021Q2

REPORT INFORMATION
  Report Type: Spontaneous
  Country: US (occurrence: US)
  Receive Date: 20210414
  Receipt Date: 20210414
  Transmission Date: 20210717
  Serious: No
  Sender: FDA-Public Use
  Company Number: US-BION-008866

PATIENT
  Age: 63 Year
  Sex: Male

DRUGS (4)
  1. ALEVE CAPLETS [Suspect]
     Active Substance: NAPROXEN SODIUM
     Indication: PAIN
     Route: 048
  2. COZAAR [Concomitant]
     Active Substance: LOSARTAN POTASSIUM
     Dosage: STRENGTH: 50 MG
  3. ALEVE [Suspect]
     Active Substance: NAPROXEN SODIUM
     Indication: PAIN
     Route: 048
     Dates: start: 20200713
  4. ALEVE [Suspect]
     Active Substance: NAPROXEN SODIUM
     Indication: PAIN
     Route: 048

REACTIONS (1)
  - Incorrect product administration duration [Not Recovered/Not Resolved]
